FAERS Safety Report 11977883 (Version 2)
Quarter: 2016Q1

REPORT INFORMATION
  Report Type: Spontaneous
  Country: JP (occurrence: JP)
  Receive Date: 20160129
  Receipt Date: 20160203
  Transmission Date: 20160526
  Serious: Yes (Hospitalization)
  Sender: FDA-Public Use
  Company Number: JP-SA-2016SA014765

PATIENT
  Age: 48 Year
  Sex: Female
  Weight: 40 kg

DRUGS (16)
  1. NOREPINEPHRINE [Concomitant]
     Active Substance: NOREPINEPHRINE\NOREPINEPHRINE BITARTRATE
     Dates: start: 20160118
  2. ELPLAT [Suspect]
     Active Substance: OXALIPLATIN
     Indication: GASTRIC CANCER
     Dosage: FORM: IV INFUSION SOLUTION INJECTION.
     Route: 041
     Dates: start: 20160118, end: 20160118
  3. RINDERON V [Concomitant]
     Active Substance: BETAMETHASONE VALERATE
     Dates: start: 20151127
  4. ADRENALINE [Concomitant]
     Active Substance: EPINEPHRINE
     Dates: start: 20160118, end: 20160118
  5. NASEA [Concomitant]
     Active Substance: RAMOSETRON HYDROCHLORIDE
     Dates: start: 20160119
  6. DEXART [Concomitant]
     Active Substance: DEXAMETHASONE SODIUM PHOSPHATE
     Dates: start: 20160118, end: 20160118
  7. PHELLOBERIN [Concomitant]
     Active Substance: BERBERINE\GERANIUM
     Dates: start: 20151017
  8. TAKEPRON [Concomitant]
     Active Substance: LANSOPRAZOLE
     Dates: start: 20151024
  9. SOLU-MEDROL [Concomitant]
     Active Substance: METHYLPREDNISOLONE SODIUM SUCCINATE
     Dates: start: 20160118, end: 20160118
  10. MEROPEN [Concomitant]
     Active Substance: MEROPENEM
     Dates: start: 20160118, end: 20160120
  11. ALOXI [Concomitant]
     Active Substance: PALONOSETRON HYDROCHLORIDE
     Dates: start: 20160118, end: 20160118
  12. MIYA-BM [Concomitant]
     Active Substance: CLOSTRIDIUM BUTYRICUM SPORES STRAIN M-55
     Dates: start: 20151017
  13. FUROSEMIDE. [Concomitant]
     Active Substance: FUROSEMIDE
     Dates: start: 20151024
  14. ELIETEN [Concomitant]
     Active Substance: METOCLOPRAMIDE
     Dates: start: 20160118, end: 20160118
  15. NOVAMIN [Concomitant]
     Active Substance: PROCHLORPERAZINE MALEATE
     Dates: start: 20160119
  16. LOPERAMIDE [Concomitant]
     Active Substance: LOPERAMIDE
     Dates: start: 20151016

REACTIONS (1)
  - Anaphylactic shock [Recovered/Resolved]

NARRATIVE: CASE EVENT DATE: 20160118
